FAERS Safety Report 18214714 (Version 2)
Quarter: 2020Q3

REPORT INFORMATION
  Report Type: Spontaneous
  Country: US (occurrence: US)
  Receive Date: 20200831
  Receipt Date: 20200915
  Transmission Date: 20201103
  Serious: No
  Sender: FDA-Public Use
  Company Number: US-ELI_LILLY_AND_COMPANY-US202008012523

PATIENT
  Age: 61 Year
  Sex: Male

DRUGS (1)
  1. RETEVMO [Suspect]
     Active Substance: SELPERCATINIB
     Indication: NON-SMALL CELL LUNG CANCER
     Dosage: 160 MG, BID
     Route: 048
     Dates: start: 20200629

REACTIONS (8)
  - Oedema peripheral [Not Recovered/Not Resolved]
  - Skin haemorrhage [Not Recovered/Not Resolved]
  - Skin exfoliation [Not Recovered/Not Resolved]
  - Oral herpes [Recovered/Resolved]
  - Scab [Not Recovered/Not Resolved]
  - Joint swelling [Recovering/Resolving]
  - Rash [Recovered/Resolved]
  - Face oedema [Not Recovered/Not Resolved]

NARRATIVE: CASE EVENT DATE: 20200814
